FAERS Safety Report 19202046 (Version 2)
Quarter: 2021Q2

REPORT INFORMATION
  Report Type: Report from Study
  Country: FI (occurrence: FI)
  Receive Date: 20210430
  Receipt Date: 20210514
  Transmission Date: 20210717
  Serious: Yes (Life-Threatening, Hospitalization, Other)
  Sender: FDA-Public Use
  Company Number: FI-MYLANLABS-2021M1024958

PATIENT
  Age: 48 Year
  Sex: Male

DRUGS (3)
  1. DEPRAKINE                          /00228501/ [Concomitant]
     Active Substance: VALPROATE SODIUM
     Dosage: 1000 MILLIGRAM, QD
     Dates: start: 202102, end: 20210425
  2. LEPONEX [Suspect]
     Active Substance: CLOZAPINE
     Dosage: UNK
     Dates: start: 20210409, end: 2021
  3. LEPONEX [Suspect]
     Active Substance: CLOZAPINE
     Indication: SCHIZOPHRENIA
     Dosage: 200 MILLIGRAM, QD
     Dates: start: 20210326, end: 20210405

REACTIONS (10)
  - Eosinophilia [Recovered/Resolved]
  - Thrombocytopenia [Recovered/Resolved]
  - Myocarditis [Unknown]
  - Troponin T increased [Recovered/Resolved]
  - C-reactive protein increased [Recovered/Resolved]
  - Echocardiogram abnormal [Unknown]
  - Gastroenteritis [Recovered/Resolved]
  - Asthenia [Unknown]
  - Dyspnoea [Unknown]
  - Anaemia [Recovered/Resolved]

NARRATIVE: CASE EVENT DATE: 2021
